FAERS Safety Report 5936909-7 (Version None)
Quarter: 2008Q4

REPORT INFORMATION
  Report Type: 
  Country: None (occurrence: None)
  Receive Date: 20081031
  Receipt Date: 20081022
  Transmission Date: 20090506
  Serious: Yes (Death, Other)
  Sender: FDA-Public Use
  Company Number: NL-WYE-G01973208

PATIENT
  Sex: Male

DRUGS (2)
  1. EFFEXOR XR [Suspect]
     Dosage: UNK
  2. ZOLPIDEM [Suspect]
     Dosage: UNKNOWN

REACTIONS (3)
  - AMNESIA [None]
  - COMPLETED SUICIDE [None]
  - HOMICIDE [None]
